FAERS Safety Report 5240645-2 (Version None)
Quarter: 2007Q1

REPORT INFORMATION
  Report Type: 
  Country: None (occurrence: None)
  Receive Date: 20070219
  Receipt Date: 20070207
  Transmission Date: 20070707
  Serious: Yes (Life-Threatening)
  Sender: FDA-Public Use
  Company Number: US-MERCK-0702USA03128

PATIENT
  Age: 43 Year
  Sex: Female
  Weight: 57 kg

DRUGS (6)
  1. SINGULAIR [Suspect]
     Indication: ASTHMA
     Route: 048
     Dates: start: 20061210, end: 20061210
  2. SINGULAIR [Suspect]
     Indication: RHINITIS ALLERGIC
     Route: 048
     Dates: start: 20061210, end: 20061210
  3. BENADRYL [Concomitant]
     Indication: HYPERSENSITIVITY
     Route: 048
  4. OPTIVAR OPHTHALMIC SOLUTION [Concomitant]
     Indication: HYPERSENSITIVITY
     Route: 047
  5. FORADIL [Concomitant]
     Indication: ASTHMA
  6. FLONASE [Concomitant]
     Indication: HYPERSENSITIVITY
     Route: 065

REACTIONS (3)
  - CHEST DISCOMFORT [None]
  - DYSPNOEA [None]
  - WHEEZING [None]
